FAERS Safety Report 15036661 (Version 2)
Quarter: 2018Q2

REPORT INFORMATION
  Report Type: Spontaneous
  Country: JP (occurrence: JP)
  Receive Date: 20180620
  Receipt Date: 20180625
  Transmission Date: 20180711
  Serious: Yes (Hospitalization)
  Sender: FDA-Public Use
  Company Number: JP-DSJP-DSJ-2018-123766

PATIENT

DRUGS (6)
  1. OLMETEC OD [Suspect]
     Active Substance: OLMESARTAN MEDOXOMIL
     Indication: HYPERTENSION
  2. CILNIDIPINE [Suspect]
     Active Substance: CILNIDIPINE
  3. TELMISARTAN. [Suspect]
     Active Substance: TELMISARTAN
  4. ARTIST [Suspect]
     Active Substance: CARVEDILOL
  5. TOLVAPTAN [Suspect]
     Active Substance: TOLVAPTAN
     Indication: NEPHROPATHY
  6. SPIRONOLACTONE. [Suspect]
     Active Substance: SPIRONOLACTONE

REACTIONS (2)
  - Hypertension [Recovering/Resolving]
  - Hypokalaemia [Recovering/Resolving]
